FAERS Safety Report 24326809 (Version 1)
Quarter: 2024Q3

REPORT INFORMATION
  Report Type: Report from Study
  Country: US (occurrence: US)
  Receive Date: 20240917
  Receipt Date: 20240917
  Transmission Date: 20241017
  Serious: No
  Sender: ALEXION PHARMACEUTICALS
  Company Number: US-AstraZeneca-CH-00706374A

PATIENT
  Sex: Male

DRUGS (3)
  1. SOLIRIS [Suspect]
     Active Substance: ECULIZUMAB
     Indication: Myasthenia gravis
     Dosage: UNK
     Route: 042
  2. Prostigmine [Concomitant]
     Indication: Product used for unknown indication
     Dosage: 20 MILLIGRAM
     Route: 065
  3. Prostigmine [Concomitant]
     Dosage: 30 MILLIGRAM
     Route: 065

REACTIONS (3)
  - Therapeutic product effect incomplete [Unknown]
  - Visual impairment [Unknown]
  - Fatigue [Unknown]
